FAERS Safety Report 8781112 (Version 3)
Quarter: 2013Q1

REPORT INFORMATION
  Report Type: Spontaneous
  Country: US (occurrence: US)
  Receive Date: 20120913
  Receipt Date: 20130222
  Transmission Date: 20140127
  Serious: Yes (Death, Hospitalization)
  Sender: FDA-Public Use
  Company Number: US-B.I. PHARMACEUTICALS,INC./RIDGEFIELD-2012-BP-22444BP

PATIENT
  Age: 61 Year
  Sex: Female
  Weight: 96.62 kg

DRUGS (19)
  1. PRADAXA [Suspect]
     Indication: CARDIAC DISORDER
     Dosage: 300 MG
     Route: 048
     Dates: start: 20120116, end: 20120121
  2. PRADAXA [Suspect]
     Indication: ATRIAL FIBRILLATION
  3. AMIODARONE [Concomitant]
     Dosage: 400 MG
     Route: 048
  4. DIGOXIN [Concomitant]
     Dosage: 0.25 MG
     Route: 048
  5. FUROSEMIDE [Concomitant]
  6. PRILOSEC [Concomitant]
     Dosage: 40 MG
  7. LISINOPRIL [Concomitant]
     Route: 048
  8. METOPROLOL [Concomitant]
     Route: 048
  9. ALBUTEROL [Concomitant]
     Dosage: 2 PUF
  10. ALLOPURINOL [Concomitant]
     Route: 048
  11. ASPIRIN [Concomitant]
     Dosage: 81 MG
     Route: 048
  12. GABAPENTIN [Concomitant]
     Route: 048
  13. INSULIN [Concomitant]
     Dosage: 70 U
  14. REGLAN [Concomitant]
  15. SPIRIVA [Concomitant]
  16. ASCORBIC ACID [Concomitant]
     Route: 048
  17. VITAMIN B12 [Concomitant]
     Dosage: 1000 MCG
     Route: 048
  18. WELLBUTRIN [Concomitant]
     Route: 048
  19. POTASSIUM [Concomitant]
     Dosage: 40 MEQ
     Route: 048

REACTIONS (3)
  - Intestinal ischaemia [Fatal]
  - Lower gastrointestinal haemorrhage [Recovered/Resolved]
  - Epistaxis [Unknown]
